FAERS Safety Report 4444344-6 (Version None)
Quarter: 2004Q3

REPORT INFORMATION
  Report Type: 
  Country: None (occurrence: None)
  Receive Date: 20040813
  Receipt Date: 20040426
  Transmission Date: 20050211
  Serious: Yes (Hospitalization)
  Sender: FDA-Public Use
  Company Number: A03200401304

PATIENT
  Age: 50 Year
  Sex: Male

DRUGS (1)
  1. ELITEX - RASBURICASE - SOLUTION - 22.5 UNK [Suspect]
     Indication: HYPERURICAEMIA
     Dosage: 2.5 MG ONCE - INTRAVENOUS NOS
     Route: 042
     Dates: start: 20040422, end: 20040422

REACTIONS (2)
  - ACQUIRED METHAEMOGLOBINAEMIA [None]
  - HAEMOLYTIC ANAEMIA [None]
